FAERS Safety Report 10655619 (Version 1)
Quarter: 2014Q4

REPORT INFORMATION
  Report Type: Spontaneous
  Country: US (occurrence: None)
  Receive Date: 20141215
  Receipt Date: 20141215
  Transmission Date: 20150529
  Serious: No
  Sender: FDA-Public Use
  Company Number: None

PATIENT
  Age: 32 Year
  Sex: Female
  Weight: 62.14 kg

DRUGS (1)
  1. TAMIFLU [Suspect]
     Active Substance: OSELTAMIVIR PHOSPHATE
     Indication: INFLUENZA
     Dosage: ONE PILL TWICA A DAY FOR FIVE
     Route: 048
     Dates: start: 20141213, end: 20141214

REACTIONS (8)
  - Movement disorder [None]
  - Dizziness [None]
  - Palpitations [None]
  - Feeling abnormal [None]
  - Limb discomfort [None]
  - Hypoaesthesia [None]
  - Paraesthesia [None]
  - Feeling cold [None]

NARRATIVE: CASE EVENT DATE: 20141214
